FAERS Safety Report 6194733-7 (Version None)
Quarter: 2009Q2

REPORT INFORMATION
  Report Type: 
  Country: None (occurrence: None)
  Receive Date: 20090515
  Receipt Date: 20090515
  Transmission Date: 20091009
  Serious: Yes (Other)
  Sender: FDA-Public Use
  Company Number: None

PATIENT
  Sex: Female
  Weight: 47.6277 kg

DRUGS (1)
  1. CHANTIX [Suspect]
     Indication: SMOKING CESSATION THERAPY
     Dosage: STARTER PACK STARTING WITH ONE
     Dates: start: 20090323, end: 20090401

REACTIONS (5)
  - DEPRESSION [None]
  - HYPERHIDROSIS [None]
  - NERVOUSNESS [None]
  - SLEEP APNOEA SYNDROME [None]
  - THINKING ABNORMAL [None]
